FAERS Safety Report 9927489 (Version 4)
Quarter: 2014Q3

REPORT INFORMATION
  Report Type: Spontaneous
  Country: TR (occurrence: TR)
  Receive Date: 20140227
  Receipt Date: 20140711
  Transmission Date: 20150326
  Serious: Yes (Hospitalization, Other)
  Sender: FDA-Public Use
  Company Number: TR-AMGEN-TURSP2014013750

PATIENT
  Age: 59 Year
  Sex: Female

DRUGS (3)
  1. ENBREL [Suspect]
     Active Substance: ETANERCEPT
     Dosage: 50 MG, QWK
     Route: 058
     Dates: start: 201403, end: 201404
  2. ENBREL [Suspect]
     Active Substance: ETANERCEPT
     Indication: RHEUMATOID ARTHRITIS
     Dosage: 50 MG, WEEKLY
     Route: 058
     Dates: start: 20120320, end: 201402
  3. ENBREL [Suspect]
     Active Substance: ETANERCEPT
     Dosage: 25 MG, QWK
     Route: 065
     Dates: start: 201404, end: 201406

REACTIONS (9)
  - Blood test abnormal [Unknown]
  - Drug ineffective [Not Recovered/Not Resolved]
  - Pneumonitis [Recovered/Resolved]
  - Peripheral swelling [Recovered/Resolved]
  - Cardiac failure [Unknown]
  - Inflammatory marker increased [Unknown]
  - Arthropathy [Unknown]
  - Cardiac disorder [Unknown]
  - Renal failure [Unknown]

NARRATIVE: CASE EVENT DATE: 201311
